FAERS Safety Report 9407163 (Version 2)
Quarter: 2013Q3

REPORT INFORMATION
  Report Type: Spontaneous
  Country: IT (occurrence: IT)
  Receive Date: 20130718
  Receipt Date: 20130824
  Transmission Date: 20140515
  Serious: Yes (Hospitalization)
  Sender: FDA-Public Use
  Company Number: PHHY2013IT074748

PATIENT
  Age: 84 Year
  Sex: Female

DRUGS (12)
  1. FUROSEMIDE [Suspect]
     Indication: HYPERTENSIVE CARDIOMYOPATHY
     Dosage: 25 MG, QD
     Route: 048
     Dates: start: 20020109, end: 20130613
  2. LISINOPRIL [Suspect]
     Dosage: 20 MG, QD
     Route: 048
     Dates: start: 20020109, end: 20130613
  3. NEBIVOLOL [Suspect]
     Indication: HYPERTENSIVE CARDIOMYOPATHY
     Dosage: 2.5 MG, QD
     Route: 048
     Dates: start: 20020109, end: 20130613
  4. LASITONE [Suspect]
     Indication: HYPERTENSIVE CARDIOMYOPATHY
     Dosage: 1 OT, QD
     Route: 048
     Dates: start: 20020109, end: 20130613
  5. EUTIROX [Concomitant]
     Indication: HYPOTHYROIDISM
  6. DELTACORTENE [Concomitant]
     Indication: RHEUMATOID ARTHRITIS
  7. METFORMIN [Concomitant]
     Indication: TYPE 2 DIABETES MELLITUS
  8. OLANZAPINE [Concomitant]
  9. AMINOPHYLLINE [Concomitant]
  10. CITALOPRAM [Concomitant]
  11. METHOTREXATE [Concomitant]
  12. ALLOPURINOL [Concomitant]

REACTIONS (3)
  - Renal failure acute [Recovered/Resolved]
  - Bradycardia [Recovered/Resolved]
  - Hypotension [Recovered/Resolved]
